FAERS Safety Report 6872215-4 (Version None)
Quarter: 2010Q3

REPORT INFORMATION
  Report Type: 
  Country: None (occurrence: None)
  Receive Date: 20100723
  Receipt Date: 20100715
  Transmission Date: 20110219
  Serious: No
  Sender: FDA-Public Use
  Company Number: CA-SANOFI-AVENTIS-2010SA037128

PATIENT
  Age: 84 Year
  Sex: Female

DRUGS (1)
  1. PLAVIX [Suspect]
     Route: 048
     Dates: start: 20100108

REACTIONS (1)
  - GASTRIC DISORDER [None]
